FAERS Safety Report 4839793-8 (Version None)
Quarter: 2005Q4

REPORT INFORMATION
  Report Type: 
  Country: None (occurrence: None)
  Receive Date: 20051129
  Receipt Date: 20050916
  Transmission Date: 20060501
  Serious: No
  Sender: FDA-Public Use
  Company Number: US-GLAXOSMITHKLINE-A0574536A

PATIENT
  Sex: Female

DRUGS (6)
  1. WELLBUTRIN SR [Suspect]
     Dosage: 300MG PER DAY
     Route: 048
  2. GLUCOPHAGE [Concomitant]
  3. INSULIN [Concomitant]
  4. LISINOPRIL [Concomitant]
  5. FUROSEMIDE [Concomitant]
  6. PRILOSEC [Concomitant]

REACTIONS (1)
  - DRUG ADMINISTRATION ERROR [None]
